FAERS Safety Report 16592306 (Version 3)
Quarter: 2019Q3

REPORT INFORMATION
  Report Type: Report from Study
  Country: None (occurrence: AU)
  Receive Date: 20190718
  Receipt Date: 20190814
  Transmission Date: 20191004
  Serious: Yes (Other)
  Sender: FDA-Public Use
  Company Number: AU-ABBVIE-19K-008-2839146-00

PATIENT
  Age: 72 Year
  Sex: Male

DRUGS (6)
  1. MIDODRINE [Concomitant]
     Active Substance: MIDODRINE
     Indication: ORTHOSTATIC HYPOTENSION
     Route: 048
  2. FLUDROCORTISONE [Concomitant]
     Active Substance: FLUDROCORTISONE
     Indication: ORTHOSTATIC HYPOTENSION
     Route: 048
  3. DUODOPA [Suspect]
     Active Substance: CARBIDOPA\LEVODOPA
     Dosage: 100ML GEL CASSETTE?1.6 ML/HR
     Route: 050
     Dates: start: 2019
  4. DUODOPA [Suspect]
     Active Substance: CARBIDOPA\LEVODOPA
     Indication: PARKINSON^S DISEASE
     Dosage: 14 HOUR INFUSION?100ML GEL CASSETTE?14 HOUR INFUSION?0.9 ML /HR
     Route: 050
     Dates: start: 20190629, end: 2019
  5. DOMPERIDONE [Concomitant]
     Active Substance: DOMPERIDONE
     Indication: NAUSEA
     Route: 048
     Dates: start: 20190701
  6. FLORINEF ACETATE [Concomitant]
     Active Substance: FLUDROCORTISONE ACETATE
     Indication: PRODUCT USED FOR UNKNOWN INDICATION
     Dosage: 2 TABS 7AM

REACTIONS (8)
  - Nausea [Unknown]
  - Hypotension [Unknown]
  - Blood pressure decreased [Recovered/Resolved]
  - Stoma site erythema [Unknown]
  - Mobility decreased [Recovering/Resolving]
  - Orthostatic hypotension [Recovered/Resolved]
  - Stoma site discharge [Unknown]
  - Unresponsive to stimuli [Recovered/Resolved]

NARRATIVE: CASE EVENT DATE: 2019
